FAERS Safety Report 15028729 (Version 2)
Quarter: 2018Q4

REPORT INFORMATION
  Report Type: Spontaneous
  Country: US (occurrence: US)
  Receive Date: 20180619
  Receipt Date: 20181008
  Transmission Date: 20190204
  Serious: Yes (Hospitalization, Disabling)
  Sender: FDA-Public Use
  Company Number: US-VIIV HEALTHCARE LIMITED-US2018107627

PATIENT
  Age: 27 Year
  Sex: Male
  Weight: 87 kg

DRUGS (1)
  1. TRIUMEQ [Suspect]
     Active Substance: ABACAVIR SULFATE\DOLUTEGRAVIR SODIUM\LAMIVUDINE
     Indication: HIV INFECTION
     Dosage: 1 DF, QD
     Route: 048
     Dates: start: 20170804, end: 20180614

REACTIONS (5)
  - Drug hypersensitivity [Unknown]
  - Pyrexia [Recovered/Resolved]
  - Malaise [Unknown]
  - Product dose omission [Unknown]
  - Chills [Recovered/Resolved]

NARRATIVE: CASE EVENT DATE: 201805
